FAERS Safety Report 4868705-6 (Version None)
Quarter: 2005Q4

REPORT INFORMATION
  Report Type: 
  Country: None (occurrence: None)
  Receive Date: 20051223
  Receipt Date: 20051212
  Transmission Date: 20060501
  Serious: Yes (Other)
  Sender: FDA-Public Use
  Company Number: 2005168233

PATIENT
  Age: 51 Year
  Sex: Male
  Weight: 77.1115 kg

DRUGS (4)
  1. LYRICA [Suspect]
     Indication: NECK PAIN
     Dosage: 150 MG (50 MG, 3 IN 1 D)
     Dates: start: 20051101, end: 20051209
  2. VICODIN [Concomitant]
  3. SOMA [Concomitant]
  4. AMBIEN [Concomitant]

REACTIONS (10)
  - ABDOMINAL PAIN UPPER [None]
  - ASTHENIA [None]
  - CHEST PAIN [None]
  - CHROMATOPSIA [None]
  - COUGH [None]
  - DIZZINESS [None]
  - DYSPNOEA [None]
  - DYSURIA [None]
  - HEART RATE INCREASED [None]
  - INCOHERENT [None]
